FAERS Safety Report 8471121-1 (Version None)
Quarter: 2012Q2

REPORT INFORMATION
  Report Type: 
  Country: None (occurrence: None)
  Receive Date: 20120627
  Receipt Date: 20120620
  Transmission Date: 20120825
  Serious: Yes (Hospitalization, Other)
  Sender: FDA-Public Use
  Company Number: DE-PFIZER INC-2012136980

PATIENT
  Age: 56 Year
  Sex: Male

DRUGS (2)
  1. CIALIS [Concomitant]
     Dosage: UNK
  2. CAVERJECT IMPULSE [Suspect]
     Dosage: 20 MG, UNK
     Dates: start: 20020101

REACTIONS (12)
  - BLADDER DISORDER [None]
  - ERECTILE DYSFUNCTION [None]
  - VENOUS INSUFFICIENCY [None]
  - URETHRAL STENOSIS [None]
  - PENIS DISORDER [None]
  - GASTRITIS EROSIVE [None]
  - CHOLECYSTECTOMY [None]
  - URINARY RETENTION [None]
  - URETHROTOMY [None]
  - BLADDER DIVERTICULUM [None]
  - ANORGASMIA [None]
  - GASTRIC ULCER [None]
